FAERS Safety Report 7397429-9 (Version None)
Quarter: 2011Q2

REPORT INFORMATION
  Report Type: 
  Country: None (occurrence: None)
  Receive Date: 20110406
  Receipt Date: 20110330
  Transmission Date: 20111010
  Serious: Yes (Hospitalization)
  Sender: FDA-Public Use
  Company Number: DE-BAYER-2011-027850

PATIENT
  Sex: Female
  Weight: 58 kg

DRUGS (14)
  1. DOCETAXEL [Suspect]
     Indication: BREAST CANCER METASTATIC
     Dosage: 120 MG, UNK
     Route: 042
     Dates: start: 20101227, end: 20101227
  2. BLINDED SORAFENIB (RAF KINASE INHIBITOR) [Suspect]
     Indication: BREAST CANCER METASTATIC
     Dosage: 400 UNK, UNK
     Route: 048
     Dates: start: 20101228, end: 20110329
  3. FORTUM [Concomitant]
     Indication: LEUKOPENIA
     Dosage: 2 G, QD
     Route: 042
     Dates: start: 20110328, end: 20110301
  4. DOCETAXEL [Suspect]
     Dosage: 120 MG, UNK
     Route: 042
     Dates: start: 20110117, end: 20110117
  5. DOCETAXEL [Suspect]
     Dosage: 120 MG, UNK
     Route: 042
     Dates: start: 20110321, end: 20110321
  6. FILGRASTIM [Concomitant]
     Indication: LEUKOPENIA
     Dosage: 30 ?G, QD
     Route: 058
     Dates: start: 20110329, end: 20110329
  7. CLEXANE [Concomitant]
     Indication: THROMBOSIS PROPHYLAXIS
     Dosage: UNK
     Route: 058
     Dates: start: 20110328, end: 20110301
  8. BISOPROLOL [BISOPROLOL] [Concomitant]
     Indication: HYPERTENSION
     Dosage: 5 MG, QD
     Route: 048
     Dates: start: 20110328, end: 20110301
  9. DOCETAXEL [Suspect]
     Dosage: 120 MG, UNK
     Route: 042
     Dates: start: 20110228, end: 20110228
  10. DEXAMETHASONE [Concomitant]
     Indication: ANTIEMETIC SUPPORTIVE CARE
     Dosage: 8 MG, QD
     Route: 042
     Dates: start: 20110321, end: 20110321
  11. DOCETAXEL [Suspect]
     Dosage: 120 MG, UNK
     Route: 042
     Dates: start: 20110207, end: 20110207
  12. DEXAMETHASONE [Concomitant]
     Dosage: 16 MG, QD
     Route: 048
     Dates: start: 20110320, end: 20110322
  13. NIFEDIPINE [Concomitant]
     Indication: HYPERTENSION
     Dosage: 5 MG, QD
     Route: 060
     Dates: start: 20110321, end: 20110321
  14. GRANISETRON HCL [Concomitant]
     Indication: ANTIEMETIC SUPPORTIVE CARE
     Dosage: 1 MG, QD
     Route: 042
     Dates: start: 20110321, end: 20110321

REACTIONS (5)
  - SOMNOLENCE [None]
  - RESPIRATORY ACIDOSIS [None]
  - GENERAL PHYSICAL HEALTH DETERIORATION [None]
  - UNRESPONSIVE TO STIMULI [None]
  - TACHYCARDIA [None]
